FAERS Safety Report 21962275 (Version 1)
Quarter: 2023Q1

REPORT INFORMATION
  Report Type: Other
  Country: US (occurrence: None)
  Receive Date: 20230207
  Receipt Date: 20230207
  Transmission Date: 20230418
  Serious: Yes (Hospitalization)
  Sender: FDA-Public Use
  Company Number: US-ROCHE-3278936

PATIENT
  Age: 53 Year
  Sex: Female

DRUGS (1)
  1. OCREVUS [Suspect]
     Active Substance: OCRELIZUMAB
     Indication: Multiple sclerosis
     Dosage: INFUSE 300 MG DAY 1 DAY 15, INFUSE 600MG EVERY 6 MONTHS, DATE OF TREATMENT- 15/MAR/2022
     Route: 065
     Dates: start: 20190820

REACTIONS (3)
  - Nephrolithiasis [Recovered/Resolved]
  - Decubitus ulcer [Not Recovered/Not Resolved]
  - Osteomyelitis [Not Recovered/Not Resolved]
